FAERS Safety Report 6909401-0 (Version None)
Quarter: 2010Q3

REPORT INFORMATION
  Report Type: 
  Country: None (occurrence: None)
  Receive Date: 20100805
  Receipt Date: 20100728
  Transmission Date: 20110219
  Serious: Yes (Other)
  Sender: FDA-Public Use
  Company Number: US-SANOFI-AVENTIS-2010SA045451

PATIENT
  Sex: Male

DRUGS (2)
  1. LANTUS [Suspect]
     Dosage: DOSE:80 UNIT(S)
     Route: 058
  2. NOVOLIN [Suspect]
     Dosage: 4 TO 5 UNITS DOSE:4 UNIT(S)

REACTIONS (4)
  - BLOOD GLUCOSE DECREASED [None]
  - CARDIAC DISORDER [None]
  - CHEST PAIN [None]
  - DIABETES MELLITUS INADEQUATE CONTROL [None]
